FAERS Safety Report 10313149 (Version 1)
Quarter: 2014Q3

REPORT INFORMATION
  Report Type: Spontaneous
  Country: US (occurrence: US)
  Receive Date: 20140718
  Receipt Date: 20140718
  Transmission Date: 20150326
  Serious: Yes (Life-Threatening)
  Sender: FDA-Public Use
  Company Number: US-009507513-1407USA006481

PATIENT
  Age: 46 Year
  Sex: Female
  Weight: 117.1 kg

DRUGS (2)
  1. VICTRELIS [Suspect]
     Active Substance: BOCEPREVIR
     Indication: CHRONIC HEPATITIS C
     Dosage: 4 CAPSULES TID
     Route: 048
     Dates: start: 20121024
  2. PEGASYS [Suspect]
     Active Substance: PEGINTERFERON ALFA-2A
     Dosage: DOSE: NOT SPECIFIED, FREQUENCY: Q WEEK
     Route: 058
     Dates: start: 20120927

REACTIONS (7)
  - Diarrhoea [Unknown]
  - Local swelling [Unknown]
  - Dyspnoea [Unknown]
  - Sputum abnormal [Unknown]
  - Productive cough [Unknown]
  - Skin burning sensation [Unknown]
  - Skin ulcer [Unknown]

NARRATIVE: CASE EVENT DATE: 20121221
